FAERS Safety Report 18185868 (Version 1)
Quarter: 2020Q3

REPORT INFORMATION
  Report Type: Spontaneous
  Country: US (occurrence: US)
  Receive Date: 20200822
  Receipt Date: 20200822
  Transmission Date: 20201103
  Serious: Yes (Hospitalization, Disabling)
  Sender: FDA-Public Use
  Company Number: None

PATIENT
  Age: 38 Year
  Sex: Female
  Weight: 114.75 kg

DRUGS (11)
  1. LABETALOL [Concomitant]
     Active Substance: LABETALOL\LABETALOL HYDROCHLORIDE
  2. VITAMIN C [Concomitant]
     Active Substance: ASCORBIC ACID
  3. VITAMIN D [Concomitant]
     Active Substance: VITAMIN D NOS
  4. OMPERAZOLE [Concomitant]
     Active Substance: OMEPRAZOLE
  5. AMLODIPINE [Concomitant]
     Active Substance: AMLODIPINE BESYLATE
  6. CALCIUM [Concomitant]
     Active Substance: CALCIUM
  7. HYDROCHOLRITHIAZIDE [Concomitant]
  8. BIOTIN [Concomitant]
     Active Substance: BIOTIN
  9. PROBIOTICS [Concomitant]
     Active Substance: PROBIOTICS NOS
  10. BLUMEN CLEAR ADVANCED HAND SANITIZER [Suspect]
     Active Substance: ALCOHOL
     Indication: COVID-19 PROPHYLAXIS
     Dosage: ?          OTHER FREQUENCY:ALL DAY;?
     Route: 061
  11. PRENATAL GUMMIES [Concomitant]

REACTIONS (16)
  - Balance disorder [None]
  - Magnetic resonance imaging brain abnormal [None]
  - Cerebral disorder [None]
  - Multiple sclerosis [None]
  - Diplopia [None]
  - Hypertension [None]
  - Alcoholic hangover [None]
  - Headache [None]
  - Blood methanol increased [None]
  - Alcohol use [None]
  - Recalled product administered [None]
  - Paraesthesia [None]
  - Dizziness [None]
  - Vertigo [None]
  - Inflammation [None]
  - Vision blurred [None]

NARRATIVE: CASE EVENT DATE: 20200622
